FAERS Safety Report 13088516 (Version 6)
Quarter: 2017Q2

REPORT INFORMATION
  Report Type: Spontaneous
  Country: US (occurrence: US)
  Receive Date: 20170105
  Receipt Date: 20170518
  Transmission Date: 20170830
  Serious: Yes (Hospitalization, Congenital Anomaly, Other)
  Sender: FDA-Public Use
  Company Number: PHEH2016US034172

PATIENT
  Sex: Female

DRUGS (2)
  1. ZOFRAN [Suspect]
     Active Substance: ONDANSETRON HYDROCHLORIDE
     Indication: FOETAL EXPOSURE DURING PREGNANCY
     Dosage: MOTHER DOSE: 4 MG PRN
     Route: 064
  2. ONDANSETRON HYDROCHLORIDE. [Suspect]
     Active Substance: ONDANSETRON HYDROCHLORIDE
     Indication: FOETAL EXPOSURE DURING PREGNANCY
     Dosage: MOTHER^S DOSE: 04 MG, AS NEEDED (PRN)
     Route: 064

REACTIONS (16)
  - Left-to-right cardiac shunt [Unknown]
  - Right ventricle outflow tract obstruction [Unknown]
  - Foetal exposure during pregnancy [Unknown]
  - Pulmonary valve incompetence [Unknown]
  - Fallot^s tetralogy [Unknown]
  - Patent ductus arteriosus [Unknown]
  - Cyanosis neonatal [Unknown]
  - Heart disease congenital [Unknown]
  - Vascular malformation [Unknown]
  - Ventricular septal defect [Unknown]
  - Cardiac murmur [Unknown]
  - Injury [Unknown]
  - Weight decrease neonatal [Unknown]
  - Neonatal hypoxia [Unknown]
  - Congenital pulmonary valve disorder [Unknown]
  - Pulmonary valve stenosis [Unknown]
